FAERS Safety Report 23197889 (Version 2)
Quarter: 2023Q4

REPORT INFORMATION
  Report Type: Report from Study
  Country: BR (occurrence: BR)
  Receive Date: 20231117
  Receipt Date: 20231207
  Transmission Date: 20240109
  Serious: Yes (Hospitalization)
  Sender: FDA-Public Use
  Company Number: BR-JNJFOC-20231117965

PATIENT
  Age: 53 Year
  Sex: Female
  Weight: 60 kg

DRUGS (6)
  1. GUSELKUMAB [Suspect]
     Active Substance: GUSELKUMAB
     Indication: Colitis ulcerative
     Dosage: GUSELKUMAB 400 MG SC FOLLOWED BY GUSELKUMAB 200 MG SC Q4W
     Route: 058
     Dates: start: 20230808, end: 20231003
  2. GUSELKUMAB [Suspect]
     Active Substance: GUSELKUMAB
  3. PREDNISONE [Concomitant]
     Active Substance: PREDNISONE
     Indication: Colitis ulcerative
     Route: 048
     Dates: start: 20230401
  4. AMOXICILLIN [Concomitant]
     Active Substance: AMOXICILLIN
     Indication: Product used for unknown indication
     Route: 048
     Dates: start: 20230929
  5. LIDOCAINE [Concomitant]
     Active Substance: LIDOCAINE
     Indication: Sedative therapy
     Route: 042
     Dates: start: 20231027, end: 20231027
  6. PROPOFOL [Concomitant]
     Active Substance: PROPOFOL
     Indication: Sedative therapy
     Dates: start: 20231027, end: 20231027

REACTIONS (1)
  - Appendicitis [Recovering/Resolving]

NARRATIVE: CASE EVENT DATE: 20231105
